FAERS Safety Report 17907117 (Version 1)
Quarter: 2020Q2

REPORT INFORMATION
  Report Type: Spontaneous
  Country: IN (occurrence: IN)
  Receive Date: 20200617
  Receipt Date: 20200617
  Transmission Date: 20200714
  Serious: Yes (Death, Other)
  Sender: FDA-Public Use
  Company Number: IN-MYLANLABS-2020M1057476

PATIENT
  Age: 77 Year
  Sex: Female

DRUGS (1)
  1. HERTRAZ 440 [Suspect]
     Active Substance: TRASTUZUMAB
     Indication: BREAST CANCER METASTATIC
     Dosage: 440 MILLIGRAM, Q3W
     Route: 042
     Dates: start: 20191211, end: 202001

REACTIONS (2)
  - Death [Fatal]
  - Kidney infection [Unknown]

NARRATIVE: CASE EVENT DATE: 202002
